FAERS Safety Report 7434470-1 (Version None)
Quarter: 2011Q2

REPORT INFORMATION
  Report Type: 
  Country: None (occurrence: None)
  Receive Date: 20110415
  Receipt Date: 20110404
  Transmission Date: 20111010
  Serious: Yes (Death)
  Sender: FDA-Public Use
  Company Number: 029873

PATIENT
  Sex: Male
  Weight: 80 kg

DRUGS (1)
  1. KEPPRA [Suspect]
     Indication: EPILEPSY
     Dosage: 1000 MG BID ORAL, (1500 MG BID, ORAL)
     Route: 048
     Dates: start: 20110106, end: 20110110

REACTIONS (3)
  - GRAND MAL CONVULSION [None]
  - SUDDEN UNEXPLAINED DEATH IN EPILEPSY [None]
  - CONVULSION [None]
